FAERS Safety Report 25323362 (Version 1)
Quarter: 2025Q2

REPORT INFORMATION
  Report Type: Spontaneous
  Country: US (occurrence: US)
  Receive Date: 20250516
  Receipt Date: 20250516
  Transmission Date: 20250717
  Serious: No
  Sender: UNIQUE PHARMACEUTICALS
  Company Number: US-UniquePharma-US-2025UPLSPO00056

PATIENT

DRUGS (3)
  1. GLIPIZIDE [Suspect]
     Active Substance: GLIPIZIDE
     Indication: Glycosylated haemoglobin increased
     Route: 065
  2. LISINOPRIL [Concomitant]
     Active Substance: LISINOPRIL
     Indication: Glycosylated haemoglobin increased
     Route: 065
  3. ATORVASTATIN [Concomitant]
     Active Substance: ATORVASTATIN
     Indication: Glycosylated haemoglobin increased
     Route: 065

REACTIONS (1)
  - Weight increased [Unknown]
